FAERS Safety Report 9276321 (Version 1)
Quarter: 2013Q2

REPORT INFORMATION
  Report Type: Spontaneous
  Country: US (occurrence: None)
  Receive Date: 20130502
  Receipt Date: 20130502
  Transmission Date: 20140414
  Serious: Yes (Other)
  Sender: FDA-Public Use
  Company Number: None

PATIENT
  Age: 12 Year
  Sex: Male

DRUGS (1)
  1. ZOLOFT [Suspect]
     Indication: ANXIETY
     Route: 048
     Dates: start: 20121101, end: 20130401

REACTIONS (7)
  - Mood swings [None]
  - Agitation [None]
  - Suicidal ideation [None]
  - Anger [None]
  - Emotional disorder [None]
  - Crying [None]
  - Depressed mood [None]
